FAERS Safety Report 5304686-9 (Version None)
Quarter: 2007Q2

REPORT INFORMATION
  Report Type: 
  Country: None (occurrence: None)
  Receive Date: 20070416
  Receipt Date: 20070329
  Transmission Date: 20071010
  Serious: Yes (Hospitalization)
  Sender: FDA-Public Use
  Company Number: 2007000157

PATIENT
  Age: 79 Year
  Sex: Female

DRUGS (12)
  1. TARCEVA [Suspect]
     Dosage: 100 MG, ORAL
     Route: 048
     Dates: start: 20061031, end: 20061205
  2. CORTICOSTEROID NOS (CORTICOSTEROID NOS) [Suspect]
  3. DILTIAZEM [Concomitant]
  4. LOVENOX [Concomitant]
  5. ISOSORBIDE MONONITRATE [Concomitant]
  6. ISOSORBIDE MONONITRATE [Concomitant]
  7. ALPHA-TOCOPHEROL [Concomitant]
  8. POTASSIUM CHLORIDE [Concomitant]
  9. PREDNISONE TAB [Concomitant]
  10. LORAZEPAM [Concomitant]
  11. FENOFIBRATE [Concomitant]
  12. OMEPRAZOLE [Concomitant]

REACTIONS (3)
  - DRUG INTERACTION [None]
  - HAEMOGLOBIN DECREASED [None]
  - MELAENA [None]
